FAERS Safety Report 19153610 (Version 6)
Quarter: 2021Q3

REPORT INFORMATION
  Report Type: Spontaneous
  Country: JP (occurrence: JP)
  Receive Date: 20210419
  Receipt Date: 20210704
  Transmission Date: 20211014
  Serious: Yes (Hospitalization, Other)
  Sender: FDA-Public Use
  Company Number: JP-009507513-2104JPN001057J

PATIENT
  Age: 72 Year
  Sex: Male
  Weight: 66 kg

DRUGS (20)
  1. ROSUVASTATIN OD [Concomitant]
     Dosage: 2.5 MILLIGRAM, QD
     Route: 048
  2. KEYTRUDA [Suspect]
     Active Substance: PEMBROLIZUMAB
     Indication: NON-SMALL CELL LUNG CANCER STAGE III
     Dosage: 200 MILLIGRAM, Q3W
     Route: 041
     Dates: start: 20210209, end: 20210401
  3. PYDOXAL [Concomitant]
     Active Substance: PYRIDOXAL
     Indication: INFECTION MASKED
     Dosage: 20 MILLIGRAM, QD
     Route: 048
     Dates: start: 20210215
  4. LINZESS [Concomitant]
     Active Substance: LINACLOTIDE
     Dosage: 0.5 MILLIGRAM, QD
     Route: 048
  5. URIEF [Concomitant]
     Active Substance: SILODOSIN
     Dosage: 4 MILLIGRAM, BID
     Route: 048
  6. TOARASET [Concomitant]
     Active Substance: ACETAMINOPHEN\TRAMADOL HYDROCHLORIDE
     Dosage: 5 MILLIGRAM, QD
     Route: 048
  7. SYMPROIC [Concomitant]
     Active Substance: NALDEMEDINE
     Dosage: 0.2 MILLIGRAM, QD
     Route: 048
  8. DESALEX [Concomitant]
     Active Substance: DESLORATADINE
     Dosage: 20 MILLIGRAM, QD
     Route: 048
  9. BISOPROLOL FUMARATE. [Concomitant]
     Active Substance: BISOPROLOL FUMARATE
     Dosage: 2.5 MILLIGRAM, QD
     Route: 048
  10. AMLODIPINE [AMLODIPINE BESILATE] [Concomitant]
     Active Substance: AMLODIPINE BESYLATE
     Dosage: 5 MILLIGRAM, QD
     Route: 048
  11. AZILVA [Concomitant]
     Active Substance: AZILSARTAN KAMEDOXOMIL
     Dosage: 40 MILLIGRAM, QD
     Route: 048
  12. NAIXAN [NAPROXEN] [Concomitant]
     Active Substance: NAPROXEN
     Dosage: 200 MILLIGRAM, TID
     Route: 048
  13. MAGMITT [Concomitant]
     Active Substance: MAGNESIUM OXIDE
     Dosage: 660 MILLIGRAM, TID
     Route: 048
  14. OPSO [Concomitant]
     Active Substance: MORPHINE HYDROCHLORIDE
     Dosage: 5 MILLIGRAM, QD
     Route: 048
  15. RABEPRAZOLE NA [Concomitant]
     Active Substance: RABEPRAZOLE SODIUM
     Dosage: 10 MILLIGRAM, QD
     Route: 048
  16. IMIDAFENACIN OD [Concomitant]
     Dosage: 0.1 MILLIGRAM, BID
     Route: 048
  17. ISCOTIN [Suspect]
     Active Substance: ISONIAZID
     Indication: INFECTION MASKED
     Dosage: 100 MILLIGRAM, TID
     Route: 048
     Dates: start: 20210215
  18. PACLITAXEL ALBUMIN [Suspect]
     Active Substance: PACLITAXEL
     Indication: NON-SMALL CELL LUNG CANCER STAGE III
     Dosage: 170 MILLIGRAM
     Route: 041
     Dates: start: 20210209, end: 20210401
  19. CARBOPLATIN. [Suspect]
     Active Substance: CARBOPLATIN
     Indication: NON-SMALL CELL LUNG CANCER STAGE III
     Dosage: 450 MILLIGRAM
     Route: 041
     Dates: start: 20210209, end: 20210401
  20. AMLODIPINE [AMLODIPINE BESILATE] [Concomitant]
     Active Substance: AMLODIPINE BESYLATE
     Dosage: 2.5 MILLIGRAM, QD
     Route: 048

REACTIONS (1)
  - Drug-induced liver injury [Recovered/Resolved]

NARRATIVE: CASE EVENT DATE: 20210413
